FAERS Safety Report 9498653 (Version 1)
Quarter: 2013Q3

REPORT INFORMATION
  Report Type: Spontaneous
  Country: GB (occurrence: GB)
  Receive Date: 20130904
  Receipt Date: 20130904
  Transmission Date: 20140515
  Serious: Yes (Other)
  Sender: FDA-Public Use
  Company Number: GB-WATSON-2013-15535

PATIENT
  Age: 49 Year
  Sex: Female

DRUGS (5)
  1. METRONIDAZOLE (UNKNOWN) [Suspect]
     Indication: PRODUCT USED FOR UNKNOWN INDICATION
     Dosage: UNK
     Route: 065
     Dates: start: 20130808
  2. METRONIDAZOLE (UNKNOWN) [Suspect]
     Dosage: UNK, UNKNOWN
     Route: 065
     Dates: start: 20130802
  3. NEXPLANON [Concomitant]
     Indication: PRODUCT USED FOR UNKNOWN INDICATION
     Dosage: 68 MG, UNKNOWN
     Route: 059
     Dates: start: 20110726
  4. AMOXICILLIN [Concomitant]
     Indication: PRODUCT USED FOR UNKNOWN INDICATION
     Dosage: UNK, UNKNOWN
     Route: 065
     Dates: start: 20130513, end: 20130520
  5. BENZYDAMINE HYDROCHLORIDE [Concomitant]
     Indication: PRODUCT USED FOR UNKNOWN INDICATION
     Dosage: UNK, UNKNOWN
     Route: 065
     Dates: start: 20130513, end: 20130520

REACTIONS (3)
  - Joint swelling [Unknown]
  - Vomiting [Unknown]
  - Diarrhoea [Unknown]
